FAERS Safety Report 4837062-3 (Version None)
Quarter: 2005Q4

REPORT INFORMATION
  Report Type: 
  Country: None (occurrence: None)
  Receive Date: 20051121
  Receipt Date: 20051121
  Transmission Date: 20060501
  Serious: Yes (Hospitalization)
  Sender: FDA-Public Use
  Company Number: None

PATIENT
  Age: 65 Year
  Sex: Male
  Weight: 94 kg

DRUGS (4)
  1. DAPTOMYCIN [Suspect]
     Indication: ENDOCARDITIS
     Dosage: 500 MG IV Q48 H
     Route: 042
     Dates: start: 20050915, end: 20051011
  2. DAPTOMYCIN [Suspect]
     Indication: ENDOCARDITIS ENTEROCOCCAL
     Dosage: 500 MG IV Q48 H
     Route: 042
     Dates: start: 20050915, end: 20051011
  3. AMPICILLIN [Suspect]
     Dosage: 2 GM IV Q 12 HRS
     Route: 042
     Dates: start: 20050906, end: 20051011
  4. GENT [Concomitant]

REACTIONS (2)
  - EOSINOPHILIA [None]
  - HAEMODIALYSIS [None]
